FAERS Safety Report 18425545 (Version 1)
Quarter: 2020Q4

REPORT INFORMATION
  Report Type: Spontaneous
  Country: US (occurrence: US)
  Receive Date: 20201025
  Receipt Date: 20201025
  Transmission Date: 20210114
  Serious: Yes (Disabling, Other)
  Sender: FDA-Public Use
  Company Number: None

PATIENT
  Age: 52 Year
  Sex: Male

DRUGS (1)
  1. TRIAMCINOLONE [Suspect]
     Active Substance: TRIAMCINOLONE
     Indication: DERMATITIS ATOPIC
     Route: 061

REACTIONS (9)
  - Peripheral swelling [None]
  - Withdrawal syndrome [None]
  - Red man syndrome [None]
  - Swelling face [None]
  - Pruritus [None]
  - Skin weeping [None]
  - Alopecia [None]
  - Insomnia [None]
  - Skin burning sensation [None]

NARRATIVE: CASE EVENT DATE: 20200801
